FAERS Safety Report 10398603 (Version 1)
Quarter: 2014Q3

REPORT INFORMATION
  Report Type: Spontaneous
  Country: US (occurrence: None)
  Receive Date: 20140819
  Receipt Date: 20140819
  Transmission Date: 20150326
  Serious: Yes (Hospitalization)
  Sender: FDA-Public Use
  Company Number: 2492060

PATIENT
  Age: 51 Year
  Sex: Female

DRUGS (6)
  1. LETROZOLE. [Suspect]
     Active Substance: LETROZOLE
     Indication: DRUG THERAPY
  2. DOXORUBICIN [Suspect]
     Active Substance: DOXORUBICIN
     Indication: INVASIVE DUCTAL BREAST CARCINOMA
  3. TAMOXIFEN [Suspect]
     Active Substance: TAMOXIFEN
     Indication: DRUG THERAPY
     Dates: end: 200804
  4. PACLITAXEL. [Suspect]
     Active Substance: PACLITAXEL
     Indication: INVASIVE DUCTAL BREAST CARCINOMA
  5. CYCLOPHOSPHAMIDE. [Suspect]
     Active Substance: CYCLOPHOSPHAMIDE
     Indication: INVASIVE DUCTAL BREAST CARCINOMA
  6. GOSERELIN [Suspect]
     Active Substance: GOSERELIN
     Indication: DRUG THERAPY

REACTIONS (4)
  - Primitive neuroectodermal tumour [None]
  - Ejection fraction decreased [None]
  - Brain mass [None]
  - Visual impairment [None]

NARRATIVE: CASE EVENT DATE: 201203
